FAERS Safety Report 6183135-5 (Version None)
Quarter: 2009Q2

REPORT INFORMATION
  Report Type: 
  Country: None (occurrence: None)
  Receive Date: 20090506
  Receipt Date: 20090429
  Transmission Date: 20091009
  Serious: Yes (Other)
  Sender: FDA-Public Use
  Company Number: 2009SP009199

PATIENT
  Age: 39 Year
  Sex: Male

DRUGS (1)
  1. NASONEX [Suspect]
     Indication: RHINITIS ALLERGIC
     Dosage: 1 DF;BID
     Dates: start: 19940101

REACTIONS (3)
  - CHORIORETINOPATHY [None]
  - HALO VISION [None]
  - VISUAL IMPAIRMENT [None]
